FAERS Safety Report 16256504 (Version 1)
Quarter: 2019Q2

REPORT INFORMATION
  Report Type: Spontaneous
  Country: US (occurrence: US)
  Receive Date: 20190430
  Receipt Date: 20190430
  Transmission Date: 20190711
  Serious: No
  Sender: FDA-Public Use
  Company Number: US-ABBVIE-18S-163-2509834-00

PATIENT
  Sex: Female

DRUGS (2)
  1. CREON [Suspect]
     Active Substance: PANCRELIPASE AMYLASE\PANCRELIPASE LIPASE\PANCRELIPASE PROTEASE
     Indication: CYSTIC FIBROSIS
     Route: 065
  2. ADVIL [Suspect]
     Active Substance: IBUPROFEN
     Indication: PRODUCT USED FOR UNKNOWN INDICATION
     Route: 065

REACTIONS (9)
  - Diabetes mellitus [Unknown]
  - Mental disorder [Unknown]
  - Increased bronchial secretion [Unknown]
  - Lung infection [Unknown]
  - Feeling abnormal [Unknown]
  - Lethargy [Unknown]
  - Somnolence [Unknown]
  - Drug interaction [Unknown]
  - Productive cough [Unknown]

NARRATIVE: CASE EVENT DATE: 2017
